FAERS Safety Report 16060990 (Version 1)
Quarter: 2019Q1

REPORT INFORMATION
  Report Type: Spontaneous
  Country: US (occurrence: US)
  Receive Date: 20190312
  Receipt Date: 20190312
  Transmission Date: 20190418
  Serious: No
  Sender: FDA-Public Use
  Company Number: US-ROCHE-2260435

PATIENT
  Sex: Female
  Weight: 61.29 kg

DRUGS (1)
  1. KADCYLA [Suspect]
     Active Substance: ADO-TRASTUZUMAB EMTANSINE
     Indication: PRODUCT USED FOR UNKNOWN INDICATION
     Dosage: ONGOING: NO, RECEIVED 80 INFUSIONS
     Route: 042
     Dates: start: 201303, end: 201804

REACTIONS (1)
  - Liver disorder [Unknown]
